FAERS Safety Report 6237186-2 (Version None)
Quarter: 2009Q2

REPORT INFORMATION
  Report Type: 
  Country: None (occurrence: None)
  Receive Date: 20090617
  Receipt Date: 20080229
  Transmission Date: 20091009
  Serious: No
  Sender: FDA-Public Use
  Company Number: 272749

PATIENT
  Age: 66 Year
  Sex: Female

DRUGS (2)
  1. LEVEMIR [Suspect]
     Indication: INSULIN-REQUIRING TYPE 2 DIABETES MELLITUS
     Dosage: 10 U, QD, (PM), SUBCUTANEOUS
     Route: 058
     Dates: start: 20071210, end: 20071213
  2. LEVEMIR [Suspect]
     Indication: TYPE 2 DIABETES MELLITUS
     Dosage: 10 U, QD, (PM), SUBCUTANEOUS
     Route: 058
     Dates: start: 20071210, end: 20071213

REACTIONS (2)
  - RASH [None]
  - URTICARIA [None]
